FAERS Safety Report 4499661-0 (Version None)
Quarter: 2004Q4

REPORT INFORMATION
  Report Type: 
  Country: None (occurrence: None)
  Receive Date: 20041112
  Receipt Date: 20031215
  Transmission Date: 20050328
  Serious: Yes (Hospitalization)
  Sender: FDA-Public Use
  Company Number: GB-ABBOTT-03P-167-0244905-00

PATIENT
  Sex: Male
  Weight: 82.7 kg

DRUGS (11)
  1. SIBUTRAMINE [Suspect]
     Indication: OBESITY
     Route: 048
     Dates: start: 20031122
  2. RAMIPRIL [Concomitant]
     Indication: HYPERTENSION
  3. INSULIN ASPART [Concomitant]
     Indication: DIABETES MELLITUS
  4. BENDROFLUMETHIAZIDE [Concomitant]
     Indication: HYPERTENSION
  5. PRAZOSIN HYDROCHLORIDE [Concomitant]
     Indication: PROSTATISM
     Dates: start: 20031202, end: 20040101
  6. ACETAMINOPHEN W/ CODEINE [Concomitant]
     Indication: ANALGESIC EFFECT
     Dosage: 30/500
     Dates: start: 20040319
  7. ACETAMINOPHEN [Concomitant]
     Indication: BACK PAIN
     Dosage: 500 MG
  8. ISOPHANE INSULIN [Concomitant]
     Indication: DIABETES MELLITUS
  9. FENOFIBRATE [Concomitant]
     Indication: HYPERLIPIDAEMIA
  10. LOPERAMIDE HCL [Concomitant]
     Indication: DIARRHOEA
  11. ACETYLSALICYLIC ACID [Concomitant]
     Indication: MYOCARDIAL ISCHAEMIA

REACTIONS (2)
  - BENIGN PROSTATIC HYPERPLASIA [None]
  - PROSTATITIS [None]
